FAERS Safety Report 12892277 (Version 1)
Quarter: 2016Q4

REPORT INFORMATION
  Report Type: Spontaneous
  Country: IT (occurrence: IT)
  Receive Date: 20161028
  Receipt Date: 20161028
  Transmission Date: 20170207
  Serious: Yes (Other)
  Sender: FDA-Public Use
  Company Number: IT-HORIZON-BUP-0109-2016

PATIENT
  Age: 18 Year
  Sex: Male
  Weight: 50 kg

DRUGS (4)
  1. RIFAMPICIN [Concomitant]
     Active Substance: RIFAMPIN
     Indication: PRURITUS
     Dosage: 300 MG, QD
     Route: 048
  2. VITAMINS [Concomitant]
     Active Substance: VITAMINS
     Indication: CHOLESTASIS
     Route: 030
  3. AMMONAPS POWDER [Suspect]
     Active Substance: SODIUM PHENYLBUTYRATE
     Indication: CHOLESTASIS
     Dosage: 10 G, QD
     Route: 048
     Dates: start: 20141016, end: 20141031
  4. DEURSIL [Concomitant]
     Active Substance: URSODIOL
     Indication: CHOLESTASIS
     Dosage: 25 MG PER KG OF BODY WEIGHT PER DAY
     Route: 048

REACTIONS (9)
  - Irritability [Recovered/Resolved]
  - Nausea [Recovered/Resolved]
  - Asthenia [Recovered/Resolved]
  - Off label use [Recovered/Resolved]
  - Fatigue [Recovered/Resolved]
  - Dysphoria [Unknown]
  - Bipolar disorder [Unknown]
  - Headache [Recovered/Resolved]
  - Chest discomfort [Unknown]

NARRATIVE: CASE EVENT DATE: 2014
